FAERS Safety Report 22728595 (Version 3)
Quarter: 2024Q4

REPORT INFORMATION
  Report Type: Spontaneous
  Country: CA (occurrence: CA)
  Receive Date: 20230720
  Receipt Date: 20241015
  Transmission Date: 20250115
  Serious: Yes (Hospitalization, Other)
  Sender: HIKMA
  Company Number: CA-HIKMA PHARMACEUTICALS-CA-H14001-23-63201

PATIENT
  Age: 34 Year
  Sex: Female
  Weight: 130 kg

DRUGS (32)
  1. AMOXICILLIN\CLAVULANATE POTASSIUM [Suspect]
     Active Substance: AMOXICILLIN\CLAVULANATE POTASSIUM
     Indication: Product used for unknown indication
     Dosage: UNKNOWN
     Route: 065
  2. AMOXICILLIN\CLAVULANATE POTASSIUM [Suspect]
     Active Substance: AMOXICILLIN\CLAVULANATE POTASSIUM
     Indication: Product used for unknown indication
     Dosage: UNKNOWN
     Route: 065
  3. ATIVAN [Suspect]
     Active Substance: LORAZEPAM
     Indication: Product used for unknown indication
     Dosage: UNKNOWN
     Route: 065
  4. CEFACLOR [Suspect]
     Active Substance: CEFACLOR
     Indication: Product used for unknown indication
     Dosage: UNKNOWN
     Route: 065
  5. CEFTRIAXONE [Suspect]
     Active Substance: CEFTRIAXONE
     Indication: Product used for unknown indication
     Dosage: UNKNOWN
     Route: 065
  6. CEFTRIAXONE SODIUM [Suspect]
     Active Substance: CEFTRIAXONE SODIUM
     Indication: Product used for unknown indication
     Dosage: UNKNOWN
     Route: 065
  7. CITALOPRAM [Suspect]
     Active Substance: CITALOPRAM
     Indication: Product used for unknown indication
     Dosage: UNKNOWN
     Route: 065
  8. CODEINE [Suspect]
     Active Substance: CODEINE
     Indication: Product used for unknown indication
     Dosage: UNKNOWN
     Route: 065
  9. EPINEPHRINE [Suspect]
     Active Substance: EPINEPHRINE
     Indication: Anaphylactic reaction
     Dosage: 0.3 MILLIGRAM
     Route: 065
  10. FENTANYL [Suspect]
     Active Substance: FENTANYL
     Indication: Product used for unknown indication
     Dosage: UNKNOWN
     Route: 065
  11. LEVOFLOXACIN [Suspect]
     Active Substance: LEVOFLOXACIN
     Indication: Product used for unknown indication
     Dosage: UNK
     Route: 065
  12. METHYLPREDNISOLONE SODIUM SUCCINATE [Suspect]
     Active Substance: METHYLPREDNISOLONE SODIUM SUCCINATE
     Indication: Product used for unknown indication
     Dosage: 80 MILLIGRAM
     Route: 042
  13. MORPHINE [Suspect]
     Active Substance: MORPHINE
     Indication: Product used for unknown indication
     Dosage: UNKNOWN
     Route: 065
  14. OMALIZUMAB [Suspect]
     Active Substance: OMALIZUMAB
     Dosage: 300 MILLIGRAM, MONTHLY
     Route: 058
  15. OMALIZUMAB [Suspect]
     Active Substance: OMALIZUMAB
     Indication: Chronic spontaneous urticaria
     Dosage: 300 MILLIGRAM, QOW
     Route: 058
  16. OMALIZUMAB [Suspect]
     Active Substance: OMALIZUMAB
     Dosage: 300 MILLIGRAM
     Route: 058
  17. OMALIZUMAB [Suspect]
     Active Substance: OMALIZUMAB
     Dosage: 375 MILLIGRAM, QOW
     Route: 058
  18. OMALIZUMAB [Suspect]
     Active Substance: OMALIZUMAB
     Dosage: 300 MILLIGRAM, QOW
     Route: 065
  19. LEVOFLOXACIN [Suspect]
     Active Substance: LEVOFLOXACIN
     Indication: Product used for unknown indication
     Dosage: UNKNOWN
     Route: 065
  20. TETRACYCLINE [Suspect]
     Active Substance: TETRACYCLINE
     Indication: Product used for unknown indication
     Dosage: UNKNOWN
     Route: 065
  21. ALVESCO [Concomitant]
     Active Substance: CICLESONIDE
     Indication: Asthma
     Dosage: 2 DOSAGE FORM, TID
     Route: 055
  22. BUDESONIDE\FORMOTEROL FUMARATE [Concomitant]
     Active Substance: BUDESONIDE\FORMOTEROL FUMARATE
     Indication: Product used for unknown indication
     Dosage: 1 DOSAGE FORM, BID
     Route: 048
  23. CETIRIZINE HYDROCHLORIDE [Concomitant]
     Active Substance: CETIRIZINE HYDROCHLORIDE
     Indication: Product used for unknown indication
     Dosage: 20 MILLIGRAM, BID
     Route: 048
  24. IRBESARTAN [Concomitant]
     Active Substance: IRBESARTAN
     Indication: Product used for unknown indication
     Dosage: UNKNOWN
     Route: 065
  25. KETOTIFEN FUMARATE [Concomitant]
     Active Substance: KETOTIFEN FUMARATE
     Indication: Chronic spontaneous urticaria
     Dosage: 1 DOSAGE FORM
     Route: 048
  26. PREVACID [Concomitant]
     Active Substance: LANSOPRAZOLE
     Indication: Product used for unknown indication
     Dosage: 1 DOSAGE FORM, QD
     Route: 048
  27. RANITIDINE [Concomitant]
     Active Substance: RANITIDINE
     Indication: Product used for unknown indication
     Dosage: 2 DOSAGE FORM, Q12H
     Route: 048
  28. CETIRIZINE HYDROCHLORIDE [Concomitant]
     Active Substance: CETIRIZINE HYDROCHLORIDE
     Indication: Product used for unknown indication
     Dosage: 20 MILLIGRAM, Q12H
     Route: 048
  29. RUPATADINE FUMARATE [Concomitant]
     Active Substance: RUPATADINE FUMARATE
     Indication: Product used for unknown indication
     Dosage: 1 DOSAGE FORM, BID
     Route: 048
  30. SINGULAIR [Concomitant]
     Active Substance: MONTELUKAST SODIUM
     Indication: Product used for unknown indication
     Dosage: 1 DOSAGE FORM, QD
     Route: 048
  31. VENTOLIN [Concomitant]
     Active Substance: ALBUTEROL SULFATE
     Indication: Product used for unknown indication
     Dosage: 1 DOSAGE FORM, BID
     Route: 048
  32. VENTOLIN [Concomitant]
     Active Substance: ALBUTEROL SULFATE
     Dosage: UNK, WEEKLY
     Route: 065

REACTIONS (47)
  - Abdominal discomfort [Not Recovered/Not Resolved]
  - Abdominal pain [Not Recovered/Not Resolved]
  - Angioedema [Recovered/Resolved]
  - Asthma [Recovered/Resolved]
  - Blood pressure increased [Not Recovered/Not Resolved]
  - Chest discomfort [Recovered/Resolved]
  - Clostridium difficile infection [Not Recovered/Not Resolved]
  - Cough [Recovered/Resolved]
  - Diarrhoea [Not Recovered/Not Resolved]
  - Dizziness [Recovered/Resolved]
  - Drug hypersensitivity [Recovered/Resolved]
  - Dry eye [Not Recovered/Not Resolved]
  - Dysphagia [Recovered/Resolved]
  - Dysphemia [Recovered/Resolved]
  - Dysphonia [Not Recovered/Not Resolved]
  - Dyspnoea [Recovered/Resolved]
  - Eye inflammation [Not Recovered/Not Resolved]
  - Fatigue [Not Recovered/Not Resolved]
  - Food intolerance [Not Recovered/Not Resolved]
  - Headache [Not Recovered/Not Resolved]
  - Hypersensitivity [Not Recovered/Not Resolved]
  - Hypotension [Not Recovered/Not Resolved]
  - Illness [Recovered/Resolved]
  - Immunisation reaction [Recovered/Resolved]
  - Muscle tension dysphonia [Recovered/Resolved]
  - Muscle tightness [Not Recovered/Not Resolved]
  - Muscular weakness [Not Recovered/Not Resolved]
  - Nausea [Not Recovered/Not Resolved]
  - Obesity [Recovered/Resolved]
  - Oral pruritus [Not Recovered/Not Resolved]
  - Oropharyngeal discomfort [Not Recovered/Not Resolved]
  - Paraesthesia oral [Not Recovered/Not Resolved]
  - Paralysis [Not Recovered/Not Resolved]
  - Pruritus [Recovered/Resolved]
  - Rash erythematous [Not Recovered/Not Resolved]
  - Rash pruritic [Not Recovered/Not Resolved]
  - Restrictive pulmonary disease [Recovered/Resolved]
  - Speech disorder [Recovered/Resolved]
  - Urticaria [Recovered/Resolved]
  - Viral infection [Recovered/Resolved]
  - Vomiting [Not Recovered/Not Resolved]
  - Wheezing [Recovered/Resolved]
  - Drug ineffective [Recovered/Resolved]
  - Inappropriate schedule of product administration [Not Recovered/Not Resolved]
  - Vaccination complication [Not Recovered/Not Resolved]
  - Product dose omission issue [Not Recovered/Not Resolved]
  - Productive cough [Recovered/Resolved]
